FAERS Safety Report 11124392 (Version 1)
Quarter: 2015Q2

REPORT INFORMATION
  Report Type: Report from Study
  Country: US (occurrence: US)
  Receive Date: 20150520
  Receipt Date: 20150520
  Transmission Date: 20150821
  Serious: Yes (Hospitalization)
  Sender: FDA-Public Use
  Company Number: US-BIOGENIDEC-2015BI065912

PATIENT
  Sex: Female

DRUGS (1)
  1. TYSABRI [Suspect]
     Active Substance: NATALIZUMAB
     Indication: MULTIPLE SCLEROSIS
     Route: 042
     Dates: start: 20140602

REACTIONS (4)
  - Deep vein thrombosis [Recovered/Resolved]
  - Hallucination [Recovered/Resolved]
  - Pulmonary embolism [Recovered/Resolved]
  - Influenza like illness [Recovered/Resolved]
